FAERS Safety Report 11331888 (Version 1)
Quarter: 2015Q3

REPORT INFORMATION
  Report Type: Spontaneous
  Country: US (occurrence: US)
  Receive Date: 20150803
  Receipt Date: 20150803
  Transmission Date: 20151125
  Serious: No
  Sender: FDA-Public Use
  Company Number: US-ELI_LILLY_AND_COMPANY-US200805000650

PATIENT
  Sex: Male

DRUGS (6)
  1. ZYPREXA [Suspect]
     Active Substance: OLANZAPINE
     Indication: SCHIZOPHRENIA
     Dosage: 20 MG, DAILY (1/D)
     Route: 048
  2. LORAZEPAM. [Concomitant]
     Active Substance: LORAZEPAM
     Dosage: 1 MG, DAILY (1/D)
     Route: 048
  3. ATIVAN [Concomitant]
     Active Substance: LORAZEPAM
  4. DIVALPROEX [Concomitant]
     Active Substance: DIVALPROEX SODIUM
  5. BENZOTROPINE [Concomitant]
     Active Substance: BENZTROPINE
     Dosage: 1 MG, DAILY (1/D)
     Route: 048
  6. HALDOL [Concomitant]
     Active Substance: HALOPERIDOL
     Dosage: 100 MG, UNK
     Route: 030

REACTIONS (1)
  - Aggression [Recovered/Resolved]
